FAERS Safety Report 7177735-3 (Version None)
Quarter: 2010Q4

REPORT INFORMATION
  Report Type: 
  Country: None (occurrence: None)
  Receive Date: 20101220
  Receipt Date: 20101216
  Transmission Date: 20110411
  Serious: Yes (Other)
  Sender: FDA-Public Use
  Company Number: US-MERCK-0703USA02411

PATIENT
  Age: 66 Year
  Sex: Female

DRUGS (3)
  1. FOSAMAX [Suspect]
     Route: 048
     Dates: start: 20051101, end: 20060801
  2. METFORMIN [Concomitant]
     Route: 065
  3. ASPIRIN [Concomitant]
     Route: 065

REACTIONS (9)
  - CONJUNCTIVAL HAEMORRHAGE [None]
  - DENTAL CARIES [None]
  - GINGIVAL DISORDER [None]
  - JAW DISORDER [None]
  - LUNG DISORDER [None]
  - NEOPLASM MALIGNANT [None]
  - PAIN IN JAW [None]
  - TOOTH FRACTURE [None]
  - TOOTHACHE [None]
